FAERS Safety Report 15287456 (Version 5)
Quarter: 2019Q1

REPORT INFORMATION
  Report Type: Spontaneous
  Country: TH (occurrence: TH)
  Receive Date: 20180817
  Receipt Date: 20190314
  Transmission Date: 20190417
  Serious: Yes (Hospitalization)
  Sender: FDA-Public Use
  Company Number: TH-ASTRAZENECA-2018SF03595

PATIENT
  Age: 24262 Day
  Sex: Female
  Weight: 60 kg

DRUGS (23)
  1. ATIVAN [Concomitant]
     Active Substance: LORAZEPAM
     Route: 048
     Dates: start: 2015
  2. UREA. [Concomitant]
     Active Substance: UREA
     Indication: RASH PUSTULAR
     Dosage: 4 TIMES,AS REQUIRED
     Route: 003
     Dates: start: 20160129
  3. LEVOCETIRIZINE [Concomitant]
     Active Substance: LEVOCETIRIZINE
     Route: 048
     Dates: start: 20171228
  4. METHYL SALICYLATE [Concomitant]
     Active Substance: METHYL SALICYLATE
     Indication: BACK PAIN
     Dosage: AS REQUIRED
     Route: 058
     Dates: start: 20180209
  5. IRESSA [Suspect]
     Active Substance: GEFITINIB
     Indication: NON-SMALL CELL LUNG CANCER METASTATIC
     Route: 048
     Dates: start: 20160115, end: 20180615
  6. CARBOCISTEINE [Concomitant]
     Active Substance: CARBOCYSTEINE
     Dosage: 1.0DF AS REQUIRED
     Route: 048
     Dates: start: 2014
  7. UREA. [Concomitant]
     Active Substance: UREA
     Indication: RASH PUSTULAR
     Dosage: TWO TIMES A DAY
     Route: 003
     Dates: start: 20170921
  8. ENAPRIL [Concomitant]
     Active Substance: ENALAPRIL
     Route: 048
     Dates: start: 20160318
  9. TRIAMCINOLONE [Concomitant]
     Active Substance: TRIAMCINOLONE
     Indication: RASH PUSTULAR
     Dosage: TWO TIMES A DAY
     Route: 003
     Dates: start: 20170921
  10. ALUM MILK [Concomitant]
     Indication: GASTROOESOPHAGEAL REFLUX DISEASE
     Dosage: 30.0MG AS REQUIRED
     Route: 048
     Dates: start: 20171006
  11. TRAMADOL. [Concomitant]
     Active Substance: TRAMADOL
     Dosage: 1.0DF AS REQUIRED
     Route: 048
     Dates: start: 2014
  12. ARTIFICIAL TEAR [Concomitant]
     Active Substance: LANOLIN\MINERAL OIL\PETROLATUM
     Dosage: AS REQUIRED
     Route: 047
     Dates: start: 20171117
  13. BILAXTEN [Concomitant]
     Active Substance: BILASTINE
     Indication: RASH PUSTULAR
     Route: 048
     Dates: start: 20171222
  14. CLINDAMYCIN. [Concomitant]
     Active Substance: CLINDAMYCIN
     Indication: RASH PUSTULAR
     Dosage: TWO TIMES DAILY
     Route: 003
     Dates: start: 20170921
  15. MEPTIN [Concomitant]
     Active Substance: PROCATEROL HYDROCHLORIDE
     Indication: BRONCHIAL HYPERREACTIVITY
     Route: 048
     Dates: start: 20180323
  16. XANAX [Concomitant]
     Active Substance: ALPRAZOLAM
     Route: 048
     Dates: start: 20160122
  17. OMEPRAZOLE. [Concomitant]
     Active Substance: OMEPRAZOLE
     Indication: PROPHYLAXIS
     Route: 048
     Dates: start: 2014
  18. ACETYLCYSTEINE. [Concomitant]
     Active Substance: ACETYLCYSTEINE
     Route: 048
     Dates: start: 20160122
  19. CETRIZINE [Concomitant]
     Active Substance: CETIRIZINE HYDROCHLORIDE
     Route: 048
     Dates: start: 20160122
  20. BILAXTEN [Concomitant]
     Active Substance: BILASTINE
     Indication: RASH PUSTULAR
     Route: 048
     Dates: start: 20171109, end: 20171221
  21. LYRICA [Concomitant]
     Active Substance: PREGABALIN
     Route: 048
     Dates: start: 20180323
  22. TAGRISSO [Suspect]
     Active Substance: OSIMERTINIB
     Indication: NON-SMALL CELL LUNG CANCER METASTATIC
     Route: 048
     Dates: start: 20180726
  23. ROPECT [Concomitant]
     Dosage: 1.0DF AS REQUIRED
     Route: 048
     Dates: start: 2015

REACTIONS (1)
  - Acute kidney injury [Recovered/Resolved]

NARRATIVE: CASE EVENT DATE: 20180809
